FAERS Safety Report 17568806 (Version 2)
Quarter: 2020Q2

REPORT INFORMATION
  Report Type: Report from Study
  Country: None (occurrence: US)
  Receive Date: 20200321
  Receipt Date: 20200409
  Transmission Date: 20200713
  Serious: Yes (Hospitalization)
  Sender: FDA-Public Use
  Company Number: US-INSMED, INC.-US-INS-20-00251

PATIENT
  Sex: Female

DRUGS (4)
  1. MEGESTROL [Concomitant]
     Active Substance: MEGESTROL
     Indication: PRODUCT USED FOR UNKNOWN INDICATION
  2. LAMIRA NEBULIZER SYSTEM [Suspect]
     Active Substance: DEVICE
  3. ARIKAYCE [Suspect]
     Active Substance: AMIKACIN
     Route: 055
     Dates: start: 202002
  4. ARIKAYCE [Suspect]
     Active Substance: AMIKACIN
     Indication: MYCOBACTERIUM AVIUM COMPLEX INFECTION
     Route: 055
     Dates: start: 20200113, end: 202002

REACTIONS (5)
  - Vomiting [Not Recovered/Not Resolved]
  - Retching [Not Recovered/Not Resolved]
  - Pneumonectomy [Unknown]
  - Dysgeusia [Unknown]
  - Cough [Unknown]

NARRATIVE: CASE EVENT DATE: 2020
